FAERS Safety Report 17420364 (Version 1)
Quarter: 2020Q1

REPORT INFORMATION
  Report Type: Spontaneous
  Country: US (occurrence: US)
  Receive Date: 20200130
  Receipt Date: 20200130
  Transmission Date: 20200409
  Serious: Yes (Hospitalization)
  Sender: FDA-Public Use
  Company Number: None

PATIENT
  Age: 72 Year
  Sex: Male
  Weight: 79.83 kg

DRUGS (1)
  1. LACTULOSE (LACTULOSE 10GM/15ML SOLN,ORAL) [Suspect]
     Active Substance: LACTULOSE
     Indication: HEPATIC ENCEPHALOPATHY
     Dosage: ?          OTHER STRENGTH:10/15 GM/ML;?
     Route: 048
     Dates: start: 20181018, end: 20190827

REACTIONS (5)
  - Dehydration [None]
  - Hepatic encephalopathy [None]
  - Hypophagia [None]
  - Fall [None]
  - Acute kidney injury [None]

NARRATIVE: CASE EVENT DATE: 20191025
